FAERS Safety Report 9839194 (Version 1)
Quarter: 2014Q1

REPORT INFORMATION
  Report Type: Spontaneous
  Country: US (occurrence: US)
  Receive Date: 20140123
  Receipt Date: 20140123
  Transmission Date: 20141002
  Serious: Yes (Other)
  Sender: FDA-Public Use
  Company Number: CHPA2014US000918

PATIENT
  Age: 46 Year
  Sex: Female

DRUGS (4)
  1. VOLTAREN GEL [Suspect]
     Indication: PAIN
     Dosage: UNK, ONCE OR TWICE A DAY
     Route: 061
  2. VOLTAREN GEL [Suspect]
     Indication: SWELLING
  3. VOLTAREN GEL [Suspect]
     Indication: OFF LABEL USE
  4. IBUPROFEN [Suspect]
     Dosage: UNK

REACTIONS (7)
  - Intervertebral disc degeneration [Not Recovered/Not Resolved]
  - Osteoarthritis [Not Recovered/Not Resolved]
  - Swelling [Unknown]
  - Abdominal discomfort [Unknown]
  - Therapeutic response unexpected [Unknown]
  - Drug administered at inappropriate site [Unknown]
  - Inappropriate schedule of drug administration [Unknown]
